FAERS Safety Report 11364709 (Version 1)
Quarter: 2015Q3

REPORT INFORMATION
  Report Type: Spontaneous
  Country: US (occurrence: None)
  Receive Date: 20150810
  Receipt Date: 20150810
  Transmission Date: 20151125
  Serious: No
  Sender: FDA-Public Use
  Company Number: None

PATIENT
  Age: 31 Year
  Sex: Female
  Weight: 131.54 kg

DRUGS (1)
  1. BELSOMRA [Suspect]
     Active Substance: SUVOREXANT
     Indication: INSOMNIA
     Dosage: 1 PILL ONCE DAILY
     Route: 048
     Dates: start: 20150722, end: 20150722

REACTIONS (7)
  - Hypoaesthesia oral [None]
  - Hypoaesthesia [None]
  - Feeling abnormal [None]
  - Panic reaction [None]
  - Sleep disorder [None]
  - Migraine [None]
  - Anxiety [None]

NARRATIVE: CASE EVENT DATE: 20150722
